FAERS Safety Report 24573903 (Version 1)
Quarter: 2024Q4

REPORT INFORMATION
  Report Type: Spontaneous
  Country: NL (occurrence: NL)
  Receive Date: 20241104
  Receipt Date: 20241104
  Transmission Date: 20250115
  Serious: Yes (Hospitalization, Other)
  Sender: CELLTRION
  Company Number: NL-ROCHE-3551595

PATIENT

DRUGS (2)
  1. BEVACIZUMAB [Suspect]
     Active Substance: BEVACIZUMAB
     Indication: Neoplasm
     Dosage: 1000 MG (RECENT DOSE: 10/APR/2024)
     Route: 042
     Dates: start: 20240206
  2. ATEZOLIZUMAB [Suspect]
     Active Substance: ATEZOLIZUMAB
     Indication: Neoplasm
     Dosage: 1200 MG (RECENT DOSE: 10/APR/2024)
     Route: 042
     Dates: start: 20240206

REACTIONS (2)
  - Necrosis [Recovered/Resolved with Sequelae]
  - Pelvic pain [Unknown]

NARRATIVE: CASE EVENT DATE: 20240418
